FAERS Safety Report 6828116-0 (Version None)
Quarter: 2010Q3

REPORT INFORMATION
  Report Type: 
  Country: None (occurrence: None)
  Receive Date: 20100709
  Receipt Date: 20070130
  Transmission Date: 20110219
  Serious: No
  Sender: FDA-Public Use
  Company Number: US-PFIZER INC-2007009272

PATIENT
  Sex: Male
  Weight: 115.67 kg

DRUGS (6)
  1. CHANTIX [Suspect]
     Indication: SMOKING CESSATION THERAPY
     Dates: start: 20070127
  2. STELAZINE [Concomitant]
  3. DEPAKOTE [Concomitant]
  4. PAXIL CR [Concomitant]
  5. KLONOPIN [Concomitant]
  6. PRILOSEC [Concomitant]

REACTIONS (3)
  - CRYING [None]
  - HEADACHE [None]
  - NERVOUSNESS [None]
